FAERS Safety Report 5240682-8 (Version None)
Quarter: 2007Q1

REPORT INFORMATION
  Report Type: 
  Country: None (occurrence: None)
  Receive Date: 20061208
  Receipt Date: 20060403
  Transmission Date: 20070707
  Serious: Yes (Other)
  Sender: FDA-Public Use
  Company Number: 2006UW05756

PATIENT
  Age: 65 Year
  Sex: Female

DRUGS (7)
  1. CRESTOR [Suspect]
     Indication: BLOOD CHOLESTEROL INCREASED
     Dosage: 5 MG PO
     Route: 048
  2. FOLIC ACID [Concomitant]
  3. VITAMIN D [Concomitant]
  4. MAGNESIUM [Concomitant]
  5. CENTRUM SILVER [Concomitant]
  6. CALCIUM WITH VITAMIN D [Concomitant]
  7. SENOKOT [Concomitant]

REACTIONS (3)
  - DYSPNOEA [None]
  - INCREASED APPETITE [None]
  - WEIGHT INCREASED [None]
